FAERS Safety Report 17606758 (Version 2)
Quarter: 2020Q2

REPORT INFORMATION
  Report Type: Report from Study
  Country: US (occurrence: US)
  Receive Date: 20200331
  Receipt Date: 20200624
  Transmission Date: 20200713
  Serious: Yes (Hospitalization)
  Sender: FDA-Public Use
  Company Number: US-B.I. PHARMACEUTICALS,INC./RIDGEFIELD-2020-BI-016916

PATIENT
  Age: 87 Year
  Sex: Male

DRUGS (1)
  1. OFEV [Suspect]
     Active Substance: NINTEDANIB
     Indication: IDIOPATHIC PULMONARY FIBROSIS
     Route: 048
     Dates: start: 20200204

REACTIONS (3)
  - Back pain [Unknown]
  - Loss of consciousness [Unknown]
  - Confusional state [Unknown]

NARRATIVE: CASE EVENT DATE: 20200314
